FAERS Safety Report 19666746 (Version 1)
Quarter: 2021Q3

REPORT INFORMATION
  Report Type: Report from Study
  Country: AU (occurrence: AU)
  Receive Date: 20210806
  Receipt Date: 20210806
  Transmission Date: 20211014
  Serious: Yes (Death, Hospitalization, Other)
  Sender: FDA-Public Use
  Company Number: AU-JNJFOC-20210800308

PATIENT

DRUGS (7)
  1. INVEGA SUSTENNA [Suspect]
     Active Substance: PALIPERIDONE PALMITATE
  2. RISPERDAL [Suspect]
     Active Substance: RISPERIDONE
     Indication: PSYCHOTIC DISORDER
     Route: 065
  3. INVEGA [Suspect]
     Active Substance: PALIPERIDONE
     Indication: PSYCHOTIC DISORDER
     Route: 065
  4. HALDOL DECANOATE [Suspect]
     Active Substance: HALOPERIDOL DECANOATE
     Indication: PSYCHOTIC DISORDER
     Route: 065
  5. INVEGA SUSTENNA [Suspect]
     Active Substance: PALIPERIDONE PALMITATE
     Indication: PSYCHOTIC DISORDER
     Route: 065
  6. INVEGA SUSTENNA [Suspect]
     Active Substance: PALIPERIDONE PALMITATE
  7. HALOPERIDOL. [Suspect]
     Active Substance: HALOPERIDOL
     Indication: PSYCHOTIC DISORDER
     Route: 065

REACTIONS (20)
  - Torticollis [Unknown]
  - Diabetes mellitus [Unknown]
  - Aggression [Unknown]
  - Death [Fatal]
  - Galactorrhoea [Unknown]
  - Completed suicide [Unknown]
  - Injection site erythema [Unknown]
  - Myocarditis [Unknown]
  - Tachycardia [Unknown]
  - Drug ineffective [Unknown]
  - Neuroleptic malignant syndrome [Unknown]
  - Hospitalisation [Unknown]
  - Hyperprolactinaemia [Unknown]
  - Blood creatine phosphokinase increased [Unknown]
  - Agitation [Unknown]
  - Overdose [Unknown]
  - Neutropenia [Unknown]
  - Extrapyramidal disorder [Unknown]
  - Dystonia [Unknown]
  - Rash [Unknown]
